FAERS Safety Report 21834283 (Version 1)
Quarter: 2023Q1

REPORT INFORMATION
  Report Type: Spontaneous
  Country: US (occurrence: None)
  Receive Date: 20230108
  Receipt Date: 20230108
  Transmission Date: 20230417
  Serious: No
  Sender: FDA-Public Use
  Company Number: US-ROCHE-3168156

PATIENT
  Age: 9 Year
  Sex: Male
  Weight: 59.020 kg

DRUGS (1)
  1. HEMLIBRA [Suspect]
     Active Substance: EMICIZUMAB-KXWH
     Indication: Factor VIII deficiency
     Dosage: STRENGTH: 60MG/0.4ML
     Route: 058
     Dates: start: 202112

REACTIONS (2)
  - Skin laceration [Unknown]
  - Weight increased [Unknown]

NARRATIVE: CASE EVENT DATE: 20220814
